FAERS Safety Report 7245550-8 (Version None)
Quarter: 2011Q1

REPORT INFORMATION
  Report Type: 
  Country: None (occurrence: None)
  Receive Date: 20110126
  Receipt Date: 20110121
  Transmission Date: 20110831
  Serious: Yes (Other)
  Sender: FDA-Public Use
  Company Number: US-PFIZER INC-2011015617

PATIENT
  Sex: Female
  Weight: 45.4 kg

DRUGS (1)
  1. DEPO-PROVERA [Suspect]
     Indication: CONTRACEPTION
     Dosage: UNK
     Route: 030
     Dates: start: 20100801, end: 20100101

REACTIONS (4)
  - PSYCHIATRIC SYMPTOM [None]
  - PARANOIA [None]
  - DEPRESSION [None]
  - IMPAIRED DRIVING ABILITY [None]
